FAERS Safety Report 8912484 (Version 4)
Quarter: 2013Q2

REPORT INFORMATION
  Report Type: Report from Study
  Country: IT (occurrence: IT)
  Receive Date: 20121116
  Receipt Date: 20130527
  Transmission Date: 20140414
  Serious: No
  Sender: FDA-Public Use
  Company Number: IT-009507513-1210ITA007520

PATIENT
  Age: 44 Year
  Sex: Female

DRUGS (6)
  1. SYCREST [Suspect]
     Indication: BIPOLAR I DISORDER
     Dosage: 5 MG, QD
     Route: 060
     Dates: start: 20120822, end: 20120822
  2. CARBOLITHIUM [Concomitant]
     Indication: BIPOLAR DISORDER
     Dosage: 150 MG, BID
     Route: 048
     Dates: start: 20121015, end: 20121028
  3. CARBOLITHIUM [Concomitant]
     Dosage: 300 MG, BID
     Route: 048
     Dates: start: 20121029
  4. PAROXETINE [Concomitant]
     Indication: DEPRESSION
     Dosage: 20 MG, QD
     Route: 048
     Dates: start: 2006
  5. EN [Concomitant]
     Indication: ANXIOLYTIC THERAPY
     Dosage: 1 MG, QD
     Route: 048
     Dates: start: 2006
  6. TOPAMAX [Concomitant]
     Dosage: 50 MG, QD

REACTIONS (2)
  - Hypotension [Recovered/Resolved]
  - Syncope [Recovered/Resolved]
